FAERS Safety Report 8338544-2 (Version None)
Quarter: 2012Q2

REPORT INFORMATION
  Report Type: 
  Country: None (occurrence: None)
  Receive Date: 20120504
  Receipt Date: 20120423
  Transmission Date: 20120825
  Serious: Yes (Hospitalization, Other)
  Sender: FDA-Public Use
  Company Number: GB-BAXTER-2011BH028584

PATIENT
  Age: 34 Year
  Sex: Female
  Weight: 99.8 kg

DRUGS (11)
  1. LANSOPRAZOLE [Suspect]
     Route: 048
     Dates: start: 20100907, end: 20100928
  2. TRANEXAMIC ACID [Suspect]
     Dosage: 1 DF
     Route: 048
     Dates: start: 20100922, end: 20100928
  3. DEXAMETHASONE [Suspect]
     Indication: ANTIEMETIC SUPPORTIVE CARE
     Route: 048
     Dates: start: 20100907, end: 20101010
  4. IMMUNE GLOBULIN NOS [Concomitant]
     Route: 065
  5. ROMIPLOSTIM [Suspect]
     Indication: IDIOPATHIC THROMBOCYTOPENIC PURPURA
     Route: 058
     Dates: start: 20100920, end: 20100920
  6. ANTI-D IMMUNOGLOBULIN [Concomitant]
     Route: 065
  7. IMMUNE GLOBULIN (HUMAN) [Suspect]
     Indication: HAEMATOLOGY TEST ABNORMAL
     Route: 041
     Dates: start: 20100922, end: 20100923
  8. RITUXIMAB [Suspect]
     Indication: HAEMATOLOGY TEST ABNORMAL
     Route: 041
     Dates: start: 20100917, end: 20100924
  9. DEXAMETHASONE [Suspect]
     Dates: start: 20100509
  10. VINCRISTINE [Concomitant]
     Route: 065
  11. NORETHINDRONE [Suspect]
     Route: 048
     Dates: start: 20100922, end: 20100928

REACTIONS (10)
  - BLOOD BLISTER [None]
  - RASH MACULO-PAPULAR [None]
  - PURPURA [None]
  - HAEMOGLOBIN DECREASED [None]
  - MELAENA [None]
  - ARTHRALGIA [None]
  - RECTAL HAEMORRHAGE [None]
  - VAGINAL HAEMORRHAGE [None]
  - RASH ERYTHEMATOUS [None]
  - HAEMORRHAGE [None]
